FAERS Safety Report 10756401 (Version 1)
Quarter: 2015Q1

REPORT INFORMATION
  Report Type: Report from Study
  Country: DE (occurrence: DE)
  Receive Date: 20150202
  Receipt Date: 20150202
  Transmission Date: 20150721
  Serious: Yes (Hospitalization, Other)
  Sender: FDA-Public Use
  Company Number: DE-GILEAD-2015-0134417

PATIENT
  Age: 47 Year
  Sex: Male
  Weight: 76 kg

DRUGS (27)
  1. TOREM                              /01036501/ [Concomitant]
     Active Substance: TORSEMIDE
     Dosage: 1-0-0
     Dates: start: 20141017, end: 20141018
  2. CARVEDILOL. [Concomitant]
     Active Substance: CARVEDILOL
     Dosage: 6.25 MG, QD
  3. SPIRO [Concomitant]
     Dosage: 50 MG, QD
     Dates: start: 20140113
  4. CIPROFLOXACIN. [Concomitant]
     Active Substance: CIPROFLOXACIN
     Dosage: UNK
     Dates: start: 20141106, end: 20141127
  5. TOREM                              /01036501/ [Concomitant]
     Active Substance: TORSEMIDE
     Dosage: 2-1-0
     Dates: start: 20140910, end: 20141016
  6. CARVEDILOL. [Concomitant]
     Active Substance: CARVEDILOL
     Dosage: 12.5 MG, QD
     Dates: end: 20141017
  7. TOREM                              /01036501/ [Concomitant]
     Active Substance: TORSEMIDE
     Dosage: UNK
     Dates: start: 20140317, end: 20140909
  8. CALCIUM [Concomitant]
     Active Substance: CALCIUM
     Dosage: UNK
     Dates: start: 20140513
  9. PARACODIN N                        /00063002/ [Concomitant]
     Dosage: UNK
     Dates: start: 20140806
  10. XIFAXAN [Concomitant]
     Active Substance: RIFAXIMIN
     Dosage: UNK
     Dates: start: 20140113
  11. HUMANALBUMIN [Concomitant]
     Active Substance: ALBUMIN (HUMAN)
     Dosage: UNK
     Dates: start: 20141222, end: 20141222
  12. SOFOSBUVIR [Suspect]
     Active Substance: SOFOSBUVIR
     Indication: CHRONIC HEPATITIS C
     Dosage: 400 MG, QD
     Route: 048
     Dates: start: 20140221, end: 20140806
  13. SPIRO [Concomitant]
     Dosage: 25 MG, QD
     Dates: end: 20150112
  14. MG [Concomitant]
     Active Substance: MAGNESIUM
     Dosage: UNK
     Dates: start: 20140910
  15. SPIRO [Concomitant]
     Dosage: 200 MG, QD
     Dates: end: 20141017
  16. PANTOPRAZOLE [Concomitant]
     Active Substance: PANTOPRAZOLE SODIUM
     Dosage: 20 MG, QD
     Dates: start: 20140513, end: 20141017
  17. HUMANALBUMIN [Concomitant]
     Active Substance: ALBUMIN (HUMAN)
     Dosage: UNK
     Dates: start: 20141218, end: 20141218
  18. RIBAVIRIN. [Suspect]
     Active Substance: RIBAVIRIN
     Indication: CHRONIC HEPATITIS C
     Dosage: 1000 MG, QD
     Route: 048
     Dates: start: 20140221, end: 20140806
  19. TOREM                              /01036501/ [Concomitant]
     Active Substance: TORSEMIDE
     Dosage: 1-1-0
     Dates: start: 20141018, end: 20141203
  20. TOREM                              /01036501/ [Concomitant]
     Active Substance: TORSEMIDE
     Dosage: 2-1-0
     Dates: start: 20141204
  21. VIGANTOL                           /00318501/ [Concomitant]
     Dosage: UNK
     Dates: start: 20140522
  22. LACTULOSE. [Concomitant]
     Active Substance: LACTULOSE
     Dosage: UNK
     Dates: start: 20150113
  23. TOREM                              /01036501/ [Concomitant]
     Active Substance: TORSEMIDE
     Dosage: 2-0-2
     Dates: start: 20140317, end: 20140909
  24. PANTOPRAZOLE [Concomitant]
     Active Substance: PANTOPRAZOLE SODIUM
     Dosage: 40 MG, QD
     Dates: start: 20141018, end: 20150112
  25. PANTOPRAZOLE [Concomitant]
     Active Substance: PANTOPRAZOLE SODIUM
     Dosage: 20 UNK, UNK
     Dates: start: 20150113
  26. VIGANTOLETTEN [Concomitant]
     Active Substance: CHOLECALCIFEROL
     Dosage: UNK
     Dates: start: 20140508, end: 20140522
  27. HUMANALBUMIN [Concomitant]
     Active Substance: ALBUMIN (HUMAN)
     Dosage: UNK
     Dates: start: 20150106, end: 20150106

REACTIONS (5)
  - Peritonitis bacterial [Recovering/Resolving]
  - Acute kidney injury [Recovering/Resolving]
  - Hepatorenal syndrome [Recovering/Resolving]
  - Inguinal hernia [Recovered/Resolved]
  - Portal shunt [Recovered/Resolved]

NARRATIVE: CASE EVENT DATE: 20140107
